FAERS Safety Report 15837569 (Version 1)
Quarter: 2018Q4

REPORT INFORMATION
  Report Type: Spontaneous
  Country: US (occurrence: US)
  Receive Date: 20181220
  Receipt Date: 20181220
  Transmission Date: 20190205
  Serious: No
  Sender: FDA-Public Use
  Company Number: None

PATIENT
  Age: 28 Year
  Sex: Female
  Weight: 69.4 kg

DRUGS (2)
  1. BUPRENORPHINE-NALOXONE 8-2MG [Suspect]
     Active Substance: BUPRENORPHINE HYDROCHLORIDE\NALOXONE HYDROCHLORIDE
     Indication: DRUG DEPENDENCE
     Dosage: ?          OTHER DOSE:0.5 TABLET;?
     Route: 060
     Dates: start: 20180404, end: 20181218
  2. BUPRENORPHINE-NALOXONE 8-2MG [Suspect]
     Active Substance: BUPRENORPHINE HYDROCHLORIDE\NALOXONE HYDROCHLORIDE
     Indication: DRUG ABUSE
     Dosage: ?          OTHER DOSE:0.5 TABLET;?
     Route: 060
     Dates: start: 20180404, end: 20181218

REACTIONS (2)
  - Lethargy [None]
  - Somnolence [None]
